FAERS Safety Report 6817708-0 (Version None)
Quarter: 2010Q3

REPORT INFORMATION
  Report Type: 
  Country: None (occurrence: None)
  Receive Date: 20100706
  Receipt Date: 20100624
  Transmission Date: 20110219
  Serious: Yes (Other)
  Sender: FDA-Public Use
  Company Number: CN-PFIZER INC-2010065190

PATIENT
  Age: 85 Year
  Sex: Male

DRUGS (3)
  1. DIFLUCAN [Suspect]
     Indication: LUNG INFECTION
     Dosage: 0.2 G, 1X/DAY
     Route: 042
     Dates: start: 20091101, end: 20091201
  2. DIFLUCAN [Suspect]
     Dosage: 150 MG, 1X/DAY
     Route: 048
     Dates: start: 20091201, end: 20100201
  3. DIFLUCAN [Suspect]
     Dosage: 150 MG, ALTERNATE DAY
     Route: 048
     Dates: start: 20100201

REACTIONS (4)
  - DRUG INEFFECTIVE [None]
  - INAPPROPRIATE SCHEDULE OF DRUG ADMINISTRATION [None]
  - INFECTIOUS DISEASE CARRIER [None]
  - TREATMENT NONCOMPLIANCE [None]
